FAERS Safety Report 6206877-1 (Version None)
Quarter: 2009Q2

REPORT INFORMATION
  Report Type: 
  Country: None (occurrence: None)
  Receive Date: 20090528
  Receipt Date: 20090521
  Transmission Date: 20091009
  Serious: Yes (Hospitalization)
  Sender: FDA-Public Use
  Company Number: US-WATSON-2009-02982

PATIENT
  Sex: Female
  Weight: 74.83 kg

DRUGS (12)
  1. FENTANYL-100 [Suspect]
     Indication: CANCER PAIN
     Dosage: 1 PATCH, Q72HR
     Route: 062
     Dates: start: 20090416, end: 20090424
  2. FENTANYL-100 [Suspect]
     Indication: PAIN
     Dosage: 1 PATCH, Q3DAYS
     Route: 062
     Dates: start: 20050101, end: 20090416
  3. LEXAPRO [Concomitant]
     Indication: DRUG USE FOR UNKNOWN INDICATION
     Dosage: 10 MG, DAILY
     Route: 065
  4. ATIVAN [Concomitant]
     Indication: DRUG USE FOR UNKNOWN INDICATION
     Dosage: 1 MG, TID
     Route: 048
  5. LUNESTA [Concomitant]
     Indication: DRUG USE FOR UNKNOWN INDICATION
     Dosage: 2 MG, QHS
     Route: 065
  6. NEXIUM [Concomitant]
     Indication: DRUG USE FOR UNKNOWN INDICATION
     Dosage: 40 MG, DAILY
     Route: 065
  7. NORCO [Concomitant]
     Indication: PAIN
     Dosage: 1 TABLET, Q4H, PRN PAIN
     Route: 065
  8. DYAZIDE [Concomitant]
     Indication: DRUG USE FOR UNKNOWN INDICATION
     Dosage: 37.5/50 UNK, DAILY
     Route: 065
  9. CARAFATE [Concomitant]
     Indication: DRUG USE FOR UNKNOWN INDICATION
     Dosage: UNK
     Route: 065
  10. REGLAN [Concomitant]
     Indication: DRUG USE FOR UNKNOWN INDICATION
     Dosage: 10 MG, QID
     Route: 065
  11. RESTORIL                           /00393701/ [Concomitant]
     Indication: DRUG USE FOR UNKNOWN INDICATION
     Dosage: 15 MG, QHS
     Route: 065
  12. INDOCIN                            /00003801/ [Concomitant]
     Indication: DRUG USE FOR UNKNOWN INDICATION
     Dosage: 75 MG, UNK
     Route: 065

REACTIONS (8)
  - APNOEA [None]
  - DEPRESSED LEVEL OF CONSCIOUSNESS [None]
  - HYPERHIDROSIS [None]
  - INCOHERENT [None]
  - OVERDOSE [None]
  - PNEUMONIA ASPIRATION [None]
  - POSTURE ABNORMAL [None]
  - RESPIRATORY FAILURE [None]
